FAERS Safety Report 9931685 (Version 1)
Quarter: 2014Q1

REPORT INFORMATION
  Report Type: Spontaneous
  Country: US (occurrence: None)
  Receive Date: 20140227
  Receipt Date: 20140227
  Transmission Date: 20141002
  Serious: Yes (Hospitalization)
  Sender: FDA-Public Use
  Company Number: None

PATIENT
  Age: 59 Year
  Sex: Female
  Weight: 56.7 kg

DRUGS (7)
  1. AMPYRA [Suspect]
     Indication: GAIT DISTURBANCE
     Route: 048
     Dates: start: 20131028, end: 20130219
  2. AMPYRA [Suspect]
     Indication: MULTIPLE SCLEROSIS
     Route: 048
     Dates: start: 20131028, end: 20130219
  3. CELLCEPT [Concomitant]
  4. LEXAPRO [Concomitant]
  5. AMANTIDINE [Concomitant]
  6. VIT D [Concomitant]
  7. L-CARNITINE [Concomitant]

REACTIONS (1)
  - Convulsion [None]
